FAERS Safety Report 4925703-1 (Version None)
Quarter: 2006Q1

REPORT INFORMATION
  Report Type: 
  Country: None (occurrence: None)
  Receive Date: 20060228
  Receipt Date: 20050126
  Transmission Date: 20060701
  Serious: No
  Sender: FDA-Public Use
  Company Number: US-GLAXOSMITHKLINE-A0542435A

PATIENT
  Age: 49 Year
  Sex: Female

DRUGS (8)
  1. LAMICTAL [Suspect]
     Indication: BIPOLAR DISORDER
     Route: 048
  2. FAMVIR [Concomitant]
  3. HYDROXYZINE [Concomitant]
  4. WELLBUTRIN XL [Concomitant]
  5. ATIVAN [Concomitant]
  6. SYNTHROID [Concomitant]
  7. MOBIC [Concomitant]
  8. ZOLOFT [Concomitant]

REACTIONS (1)
  - APHTHOUS STOMATITIS [None]
